FAERS Safety Report 7155736-9 (Version None)
Quarter: 2010Q4

REPORT INFORMATION
  Report Type: 
  Country: None (occurrence: None)
  Receive Date: 20101123
  Receipt Date: 20100930
  Transmission Date: 20110411
  Serious: No
  Sender: FDA-Public Use
  Company Number: 018359

PATIENT
  Sex: Male

DRUGS (3)
  1. CIMZIA [Suspect]
     Indication: CROHN'S DISEASE
     Dosage: (200 MG 1X/15 DAYS SUBCUTANEOUS) (200 MG 1X/2 WEEKS SUBCUTANEOUS)
     Route: 058
     Dates: start: 20090423
  2. METHOTREXATE [Suspect]
  3. CIMZIA [Suspect]

REACTIONS (4)
  - DUODENOGASTRIC REFLUX [None]
  - DYSPHAGIA [None]
  - NEPHROLITHIASIS [None]
  - PAIN [None]
